FAERS Safety Report 19840308 (Version 1)
Quarter: 2021Q3

REPORT INFORMATION
  Report Type: Report from Study
  Country: CN (occurrence: CN)
  Receive Date: 20210916
  Receipt Date: 20210916
  Transmission Date: 20211014
  Serious: Yes (Hospitalization)
  Sender: FDA-Public Use
  Company Number: CN-BAXTER-2021BAX028243

PATIENT
  Age: 41 Year
  Sex: Female

DRUGS (10)
  1. ENDOXAN [Suspect]
     Active Substance: CYCLOPHOSPHAMIDE
     Indication: TRIPLE NEGATIVE BREAST CANCER
     Dosage: EVERY 2 WEEKS FOR 4 DOSES
     Route: 042
     Dates: start: 20210210
  2. EPIRUBICIN [Suspect]
     Active Substance: EPIRUBICIN
     Dosage: MOST RECENT DOSE PRIOR TO SERIOUS ADVERSE EVENT ONSET
     Route: 042
     Dates: start: 20210324, end: 20210324
  3. PEGFILGRASTIM [Suspect]
     Active Substance: PEGFILGRASTIM
     Indication: TRIPLE NEGATIVE BREAST CANCER
     Dosage: CYCLE 4; VISIT 1; NUMBER OF INJECTION 2
     Route: 058
     Dates: start: 20210212, end: 20210212
  4. PEGFILGRASTIM [Suspect]
     Active Substance: PEGFILGRASTIM
     Dosage: CYCLE 4; VISIT 2; NUMBER OF INJECTION 2
     Route: 058
     Dates: start: 20210226, end: 20210226
  5. ENDOXAN [Suspect]
     Active Substance: CYCLOPHOSPHAMIDE
     Dosage: MOST RECENT DOSE PRIOR TO SERIOUS ADVERSE EVENT ONSET
     Route: 042
     Dates: start: 20210324, end: 20210324
  6. PACLITAXEL. [Suspect]
     Active Substance: PACLITAXEL
     Dosage: MOST RECENT DOSE PRIOR TO SERIOUS ADVERSE EVENT ONSET
     Route: 042
     Dates: start: 20210114, end: 20210114
  7. EPIRUBICIN [Suspect]
     Active Substance: EPIRUBICIN
     Indication: TRIPLE NEGATIVE BREAST CANCER
     Dosage: EVERY 2 WEEKS FOR A TOTAL OF 4 DOSES
     Route: 042
     Dates: start: 20210210
  8. PEGFILGRASTIM [Suspect]
     Active Substance: PEGFILGRASTIM
     Dosage: CYCLE 5; VISIT 2; NUMBER OF INJECTION 2?MOST RECENT DOSE PRIOR TO SERIOUS ADVERSE EVENT ONSET
     Route: 058
     Dates: start: 20210326, end: 20210326
  9. PACLITAXEL. [Suspect]
     Active Substance: PACLITAXEL
     Indication: TRIPLE NEGATIVE BREAST CANCER
     Dosage: EVERY WEEK FOR 12 WEEKS
     Route: 042
     Dates: start: 20201029
  10. PEGFILGRASTIM [Suspect]
     Active Substance: PEGFILGRASTIM
     Dosage: CYCLE 5; VISIT 1; NUMBER OF INJECTION 2
     Route: 058
     Dates: start: 20210312, end: 20210312

REACTIONS (1)
  - Pulmonary sarcoidosis [Not Recovered/Not Resolved]

NARRATIVE: CASE EVENT DATE: 20210816
